FAERS Safety Report 8435100-2 (Version None)
Quarter: 2012Q2

REPORT INFORMATION
  Report Type: 
  Country: None (occurrence: None)
  Receive Date: 20120614
  Receipt Date: 20120607
  Transmission Date: 20120825
  Serious: Yes (Hospitalization, Other)
  Sender: FDA-Public Use
  Company Number: PHHY2011NZ81484

PATIENT
  Sex: Male

DRUGS (6)
  1. ESCITALOPRAM [Concomitant]
     Indication: DEPRESSED MOOD
     Dosage: 10 MG, UNK
     Route: 048
     Dates: start: 20111220
  2. CLOZARIL [Suspect]
     Indication: SCHIZOPHRENIA
     Dosage: 250 MG, QD
     Dates: start: 20110711, end: 20110724
  3. CLOZARIL [Suspect]
     Dosage: 150 MG
     Route: 048
     Dates: start: 20111205, end: 20120323
  4. ARIPIPRAZOLE [Concomitant]
     Dosage: 45 MG, UNK
     Route: 048
     Dates: start: 20110706, end: 20120522
  5. DIAZEPAM [Concomitant]
     Indication: SLEEP DISORDER
     Dosage: 5 MG, NOCTE
     Dates: start: 20091013
  6. OLANZAPINE [Concomitant]

REACTIONS (13)
  - FATIGUE [None]
  - BLOOD PRESSURE INCREASED [None]
  - BACTERIAL INFECTION [None]
  - BLOOD CREATINE PHOSPHOKINASE INCREASED [None]
  - DIZZINESS [None]
  - TROPONIN INCREASED [None]
  - C-REACTIVE PROTEIN INCREASED [None]
  - MYOCARDITIS [None]
  - ALANINE AMINOTRANSFERASE INCREASED [None]
  - GAMMA-GLUTAMYLTRANSFERASE INCREASED [None]
  - PYREXIA [None]
  - NIGHT SWEATS [None]
  - TACHYCARDIA [None]
